FAERS Safety Report 8619594-5 (Version None)
Quarter: 2012Q3

REPORT INFORMATION
  Report Type: 
  Country: None (occurrence: None)
  Receive Date: 20120824
  Receipt Date: 20120817
  Transmission Date: 20120928
  Serious: Yes (Other)
  Sender: FDA-Public Use
  Company Number: PHHY2012BR072008

PATIENT
  Sex: Female
  Weight: 80 kg

DRUGS (6)
  1. TRILEPTAL [Suspect]
     Dosage: 600 MG,
     Route: 048
  2. TRILEPTAL [Suspect]
     Indication: ATONIC SEIZURES
     Dosage: 300 MG,
     Route: 048
  3. TRILEPTAL [Suspect]
     Dosage: 1 TABLET IN MORNING AND 1 TABLET AT NIGHT OF EACH DOSAGE FORM EACH (300 MG AND 600 MG)
     Route: 048
  4. TRILEPTAL [Suspect]
     Dosage: 1 TABLET IN MORNING AND 1 TABLET AT NIGHT OF EACH DOSAGE FORM EACH (300 MG AND 600 MG)
     Route: 048
  5. TRILEPTAL [Suspect]
     Dosage: HALF TABLET IN MORNING AND 1 TABLET AT NIGHT OF EACH DOSAGE FORM EACH (300 MG AND 600 MG)
     Route: 048
  6. CLOBAZAM [Suspect]
     Indication: ATONIC SEIZURES
     Dosage: 20 MG, DAILY
     Route: 048

REACTIONS (9)
  - PHARYNGITIS [None]
  - DEPRESSION [None]
  - MIGRAINE [None]
  - EPILEPSY [None]
  - WEIGHT DECREASED [None]
  - FALL [None]
  - GASTROINTESTINAL INFECTION [None]
  - MALAISE [None]
  - DIZZINESS [None]
